FAERS Safety Report 26101728 (Version 2)
Quarter: 2025Q4

REPORT INFORMATION
  Report Type: Spontaneous
  Country: US (occurrence: US)
  Receive Date: 20251128
  Receipt Date: 20251211
  Transmission Date: 20260117
  Serious: Yes (Hospitalization, Other)
  Sender: MERCK SHARP & DOHME LLC
  Company Number: US-009507513-2349590

PATIENT
  Age: 75 Year
  Sex: Female

DRUGS (1)
  1. PEMBROLIZUMAB [Suspect]
     Active Substance: PEMBROLIZUMAB
     Indication: Meningioma
     Dates: start: 20250820, end: 20251022

REACTIONS (8)
  - Hyperglycaemia [Recovered/Resolved]
  - Type 1 diabetes mellitus [Recovered/Resolved]
  - Diabetic ketoacidosis [Recovered/Resolved]
  - Urinary tract infection [Unknown]
  - Hyponatraemia [Recovered/Resolved]
  - Metabolic encephalopathy [Unknown]
  - Asthenia [Unknown]
  - Escherichia infection [Unknown]

NARRATIVE: CASE EVENT DATE: 20250101
